FAERS Safety Report 5408375-1 (Version None)
Quarter: 2007Q3

REPORT INFORMATION
  Report Type: 
  Country: None (occurrence: None)
  Receive Date: 20070806
  Receipt Date: 20070806
  Transmission Date: 20080115
  Serious: Yes (Hospitalization)
  Sender: FDA-Public Use
  Company Number: None

PATIENT
  Age: 84 Year
  Sex: Male

DRUGS (2)
  1. DIGOXIN [Suspect]
     Indication: ATRIAL FIBRILLATION
     Dosage: 0.125MG EVERY DAY PO
     Route: 048
     Dates: start: 19950126, end: 20070418
  2. FELODIPINE [Suspect]
     Dosage: 5MG EVERY DAY PO
     Route: 048
     Dates: start: 20061103, end: 20070418

REACTIONS (1)
  - BRADYCARDIA [None]
